FAERS Safety Report 4286247-6 (Version None)
Quarter: 2004Q1

REPORT INFORMATION
  Report Type: 
  Country: None (occurrence: None)
  Receive Date: 20040205
  Receipt Date: 20040205
  Transmission Date: 20041129
  Serious: No
  Sender: FDA-Public Use
  Company Number: None

PATIENT
  Sex: Male
  Weight: 102.0593 kg

DRUGS (1)
  1. THALIDOMIDE 50 MG TABS (CELGENE) [Suspect]
     Indication: NON-SMALL CELL LUNG CANCER STAGE IIIB
     Dosage: SEE IMAGE
     Route: 048
     Dates: start: 20031218

REACTIONS (5)
  - BLOOD GLUCOSE DECREASED [None]
  - DRUG TOXICITY [None]
  - NEUROPATHY [None]
  - OEDEMA PERIPHERAL [None]
  - PERICARDIAL EFFUSION [None]
